FAERS Safety Report 23654554 (Version 1)
Quarter: 2024Q1

REPORT INFORMATION
  Report Type: Spontaneous
  Country: US (occurrence: None)
  Receive Date: 20240319
  Receipt Date: 20240319
  Transmission Date: 20240409
  Serious: Yes (Other)
  Sender: FDA-Public Use
  Company Number: None

PATIENT
  Age: 11 Year
  Sex: Female
  Weight: 31.05 kg

DRUGS (1)
  1. DUPIXENT [Suspect]
     Active Substance: DUPILUMAB
     Indication: Eczema
     Route: 030
     Dates: start: 20231114, end: 20231115

REACTIONS (2)
  - Respiratory tract infection [None]
  - Eczema [None]

NARRATIVE: CASE EVENT DATE: 20231215
